FAERS Safety Report 13209000 (Version 1)
Quarter: 2017Q1

REPORT INFORMATION
  Report Type: Spontaneous
  Country: US (occurrence: US)
  Receive Date: 20170209
  Receipt Date: 20170209
  Transmission Date: 20170428
  Serious: No
  Sender: FDA-Public Use
  Company Number: US-PERRIGO-16US022558

PATIENT
  Age: 28 Year
  Sex: Female
  Weight: 79.37 kg

DRUGS (2)
  1. PERMETHRIN. [Suspect]
     Active Substance: PERMETHRIN
     Indication: LICE INFESTATION
     Dosage: 60 ML, TWICE IN 5 TO 7 DAYS
     Route: 061
     Dates: start: 201611, end: 20161124
  2. PERMETHRIN. [Suspect]
     Active Substance: PERMETHRIN
     Dosage: 60 ML, SINGLE
     Route: 061
     Dates: start: 20161204, end: 20161204

REACTIONS (1)
  - Inappropriate schedule of drug administration [Recovered/Resolved]

NARRATIVE: CASE EVENT DATE: 20161124
